FAERS Safety Report 6543374-8 (Version None)
Quarter: 2010Q1

REPORT INFORMATION
  Report Type: 
  Country: None (occurrence: None)
  Receive Date: 20100120
  Receipt Date: 20100108
  Transmission Date: 20100710
  Serious: Yes (Life-Threatening)
  Sender: FDA-Public Use
  Company Number: FR-ROCHE-673047

PATIENT
  Age: 73 Year
  Sex: Female
  Weight: 74 kg

DRUGS (7)
  1. HERCEPTIN [Suspect]
     Indication: BREAST CANCER
     Route: 042
     Dates: start: 20090917
  2. HERCEPTIN [Suspect]
     Route: 042
     Dates: start: 20090924, end: 20091119
  3. TAXOTERE [Suspect]
     Dosage: DRUG NAME: TAXOTERE REPORTED AS FIRST COURSE.
     Route: 041
     Dates: start: 20090924, end: 20090924
  4. TAXOTERE [Suspect]
     Route: 041
     Dates: start: 20091015
  5. TAXOTERE [Suspect]
     Dosage: DRUG ADMINISTERED AFTER SECOND COURSE.
     Route: 041
     Dates: start: 20091105, end: 20091105
  6. GRANISETRON HCL [Concomitant]
     Dosage: DRUG NAME: GRANISETRON HYDROCHLORIDE
     Dates: start: 20090924, end: 20091105
  7. DEXAMETHASONE SODIUM PHOSPHATE [Concomitant]
     Dates: start: 20090924, end: 20091115

REACTIONS (1)
  - ATRIOVENTRICULAR BLOCK COMPLETE [None]
